FAERS Safety Report 6608484-5 (Version None)
Quarter: 2010Q1

REPORT INFORMATION
  Report Type: 
  Country: None (occurrence: None)
  Receive Date: 20100301
  Receipt Date: 20100223
  Transmission Date: 20100710
  Serious: Yes (Other)
  Sender: FDA-Public Use
  Company Number: JP-MERCK-1002USA03915

PATIENT
  Age: 63 Year
  Sex: Female

DRUGS (5)
  1. JANUVIA [Suspect]
     Indication: DIABETES MELLITUS
     Route: 048
     Dates: start: 20100209, end: 20100216
  2. HYZAAR [Concomitant]
     Indication: HYPERTENSION
     Dosage: DAILY DOSAGE UNKNOWN
     Route: 048
     Dates: start: 20091215
  3. ACTOS [Concomitant]
     Indication: DIABETES MELLITUS
     Route: 048
     Dates: start: 20090414
  4. MAGMITT [Concomitant]
     Indication: CONSTIPATION
     Dosage: DIVIDED DOSE FREQUENCY U
     Route: 065
  5. MYSLEE [Concomitant]
     Indication: INSOMNIA
     Route: 048

REACTIONS (1)
  - PHOTOSENSITIVITY REACTION [None]
